FAERS Safety Report 9273727 (Version 1)
Quarter: 2013Q2

REPORT INFORMATION
  Report Type: Spontaneous
  Country: US (occurrence: US)
  Receive Date: 20130506
  Receipt Date: 20130506
  Transmission Date: 20140414
  Serious: No
  Sender: FDA-Public Use
  Company Number: US-AMGEN-USASP2013026152

PATIENT
  Age: 47 Year
  Sex: Female

DRUGS (2)
  1. ENBREL [Suspect]
     Indication: PSORIATIC ARTHROPATHY
     Dosage: 50 MG, WEEKLY
     Dates: start: 2003
  2. ENBREL [Suspect]

REACTIONS (5)
  - Wrong technique in drug usage process [Recovered/Resolved]
  - Injection site haemorrhage [Unknown]
  - Injection site pain [Unknown]
  - Injection site discomfort [Unknown]
  - Injection site bruising [Unknown]
